FAERS Safety Report 20952893 (Version 1)
Quarter: 2022Q2

REPORT INFORMATION
  Report Type: Spontaneous
  Country: CH (occurrence: CH)
  Receive Date: 20220613
  Receipt Date: 20220613
  Transmission Date: 20220720
  Serious: Yes (Hospitalization)
  Sender: FDA-Public Use
  Company Number: None

PATIENT
  Age: 71 Year
  Sex: Male
  Weight: 69.1 kg

DRUGS (9)
  1. SULFAMETHOXAZOLE\TRIMETHOPRIM [Suspect]
     Active Substance: SULFAMETHOXAZOLE\TRIMETHOPRIM
     Indication: Pneumocystis jirovecii pneumonia
     Dosage: 6.5 DOSAGE FORMS DAILY; SULFAMETHOXAZOLE:800MG; TRIMETHOPRIM:160MG; 2.5-2-2
     Route: 048
     Dates: start: 20220406, end: 20220427
  2. ASPIRIN [Concomitant]
     Active Substance: ASPIRIN
  3. ATORVASTATIN [Concomitant]
     Active Substance: ATORVASTATIN
  4. PRADIF T [Concomitant]
     Active Substance: TAMSULOSIN HYDROCHLORIDE
  5. LAMICTAL [Concomitant]
     Active Substance: LAMOTRIGINE
  6. MOCLOBEMIDE [Concomitant]
     Active Substance: MOCLOBEMIDE
  7. TACROLIMUS [Concomitant]
     Active Substance: TACROLIMUS
  8. VALACYCLOVIR HYDROCHLORIDE [Concomitant]
     Active Substance: VALACYCLOVIR HYDROCHLORIDE
  9. PREDNISONE [Concomitant]
     Active Substance: PREDNISONE
     Dates: start: 20220406, end: 20220425

REACTIONS (2)
  - Myoclonus [Recovering/Resolving]
  - Postural tremor [Recovered/Resolved]

NARRATIVE: CASE EVENT DATE: 20220401
